FAERS Safety Report 26039710 (Version 1)
Quarter: 2025Q4

REPORT INFORMATION
  Report Type: Spontaneous
  Country: EU (occurrence: EU)
  Receive Date: 20251113
  Receipt Date: 20251113
  Transmission Date: 20260118
  Serious: Yes (Life-Threatening, Hospitalization, Congenital Anomaly)
  Sender: CHEPLAPHARM
  Company Number: None

PATIENT
  Age: 54 Year
  Sex: Female
  Weight: 65 kg

DRUGS (8)
  1. CAPECITABINE [Suspect]
     Active Substance: CAPECITABINE
     Indication: Breast cancer metastatic
     Dosage: GIVEN 1-14 DAYS FOLLOWED BY 1 WEEK REST.?DAILY DOSE: 3000 MILLIGRAM
     Route: 048
     Dates: start: 20040415
  2. CAPECITABINE [Suspect]
     Active Substance: CAPECITABINE
     Indication: Breast cancer metastatic
     Dosage: GIVEN 1-14 DAYS FOLLOWED BY 1 WEEK REST. BID?DAILY DOSE: 1500 MILLIGRAM
     Route: 048
     Dates: start: 20040617, end: 20040622
  3. CAPECITABINE [Suspect]
     Active Substance: CAPECITABINE
     Indication: Breast cancer metastatic
     Dosage: GIVEN 1-14 DAYS FOLLOWED BY 1 WEEK REST. BID?DAILY DOSE: 1500 MILLIGRAM
     Route: 048
     Dates: start: 20040708, end: 20040708
  4. CAPECITABINE [Suspect]
     Active Substance: CAPECITABINE
     Indication: Breast cancer metastatic
     Route: 048
  5. PACLITAXEL [Suspect]
     Active Substance: PACLITAXEL
     Indication: Breast cancer metastatic
     Dosage: GIVEN ON DAY 1.
     Route: 042
     Dates: start: 20040415
  6. PACLITAXEL [Suspect]
     Active Substance: PACLITAXEL
     Indication: Breast cancer metastatic
     Route: 042
     Dates: start: 20040617, end: 20040617
  7. PACLITAXEL [Suspect]
     Active Substance: PACLITAXEL
     Indication: Breast cancer metastatic
     Dosage: GIVEN ON DAY1.
     Route: 042
     Dates: start: 20040708, end: 20040708
  8. PACLITAXEL [Suspect]
     Active Substance: PACLITAXEL
     Indication: Breast cancer metastatic
     Route: 042

REACTIONS (9)
  - Small intestinal perforation [Recovering/Resolving]
  - General physical health deterioration [Recovered/Resolved]
  - Nausea [Recovered/Resolved]
  - Diarrhoea [Recovered/Resolved]
  - Vomiting [Recovering/Resolving]
  - Peritonitis [Unknown]
  - Malaise [Recovered/Resolved]
  - Nausea [Recovering/Resolving]
  - General physical health deterioration [Recovering/Resolving]

NARRATIVE: CASE EVENT DATE: 20040622
